FAERS Safety Report 8363721-4 (Version None)
Quarter: 2012Q2

REPORT INFORMATION
  Report Type: 
  Country: None (occurrence: None)
  Receive Date: 20120516
  Receipt Date: 20120514
  Transmission Date: 20120825
  Serious: Yes (Other)
  Sender: FDA-Public Use
  Company Number: US-PFIZER INC-2012106416

PATIENT
  Sex: Male

DRUGS (7)
  1. NEXIUM [Concomitant]
     Dosage: 40 MG, 1X/DAY
  2. COREG [Concomitant]
     Dosage: 6.25 MG, 2X/DAY
  3. SIMVASTATIN [Concomitant]
     Dosage: 40 MG, 1X/DAY
  4. LISINOPRIL [Concomitant]
     Dosage: 5 MG, 1X/DAY
  5. QVAR 40 [Concomitant]
     Indication: DYSPNOEA
     Dosage: UNK
  6. SYMBICORT [Concomitant]
     Indication: DYSPNOEA
     Dosage: 160/4.5 UG, 1X/DAY
  7. PRISTIQ [Suspect]
     Indication: DEPRESSION
     Dosage: 50 MG, 1X/DAY
     Route: 048
     Dates: start: 20120201

REACTIONS (3)
  - WHITE BLOOD CELL COUNT DECREASED [None]
  - CHEST PAIN [None]
  - HODGKIN'S DISEASE [None]
